FAERS Safety Report 5398194-7 (Version None)
Quarter: 2007Q3

REPORT INFORMATION
  Report Type: 
  Country: None (occurrence: None)
  Receive Date: 20070726
  Receipt Date: 20070716
  Transmission Date: 20080115
  Serious: Yes (Other)
  Sender: FDA-Public Use
  Company Number: HU-PFIZER INC-2007038699

PATIENT
  Sex: Male
  Weight: 70 kg

DRUGS (1)
  1. SALAZOPYRIN [Suspect]
     Indication: COLITIS ULCERATIVE
     Route: 048

REACTIONS (9)
  - BLISTER [None]
  - COLITIS ULCERATIVE [None]
  - DYSSOMNIA [None]
  - EYE PAIN [None]
  - HYPERSENSITIVITY [None]
  - LACRIMATION INCREASED [None]
  - ORAL DISORDER [None]
  - PRURITUS [None]
  - RASH [None]
